FAERS Safety Report 4826329-0 (Version None)
Quarter: 2005Q4

REPORT INFORMATION
  Report Type: 
  Country: None (occurrence: None)
  Receive Date: 20051109
  Receipt Date: 20051027
  Transmission Date: 20060501
  Serious: Yes (Hospitalization)
  Sender: FDA-Public Use
  Company Number: S05-USA-04139-01

PATIENT
  Age: 39 Year
  Sex: Male

DRUGS (9)
  1. LEXAPRO [Suspect]
     Indication: DEPRESSION
     Dosage: 20 MG QD PO
     Route: 048
     Dates: start: 20050221
  2. METOPROLOL [Concomitant]
  3. ANTIRETROVIRALS (NOS) [Concomitant]
  4. DAPSONE [Concomitant]
  5. PREVACID [Concomitant]
  6. DIOVAN [Concomitant]
  7. HYDROCHLOROTHIAZIDE [Concomitant]
  8. CEPHALEXIN [Concomitant]
  9. ZITHROMAX [Concomitant]

REACTIONS (6)
  - GRAND MAL CONVULSION [None]
  - HYPERTENSIVE CRISIS [None]
  - HYPOAESTHESIA [None]
  - LOSS OF CONSCIOUSNESS [None]
  - RENAL FAILURE [None]
  - UROSEPSIS [None]
